FAERS Safety Report 6741392-8 (Version None)
Quarter: 2010Q2

REPORT INFORMATION
  Report Type: 
  Country: None (occurrence: None)
  Receive Date: 20100526
  Receipt Date: 20100521
  Transmission Date: 20101027
  Serious: Yes (Death, Life-Threatening, Hospitalization, Other)
  Sender: FDA-Public Use
  Company Number: AU-BRISTOL-MYERS SQUIBB COMPANY-15061294

PATIENT
  Age: 81 Year
  Sex: Female
  Weight: 59 kg

DRUGS (2)
  1. CISPLATIN [Suspect]
     Indication: GASTROOESOPHAGEAL CANCER
     Dosage: DAY1 OF CYCLE;DRUG INTERRUPTED ON 13APR10.MOST RECENT INF ON 26MAR10
     Route: 042
     Dates: start: 20100326, end: 20100326
  2. CAPECITABINE [Suspect]
     Indication: GASTROOESOPHAGEAL CANCER
     Dosage: TABLET,DAY 1-15; RECENT DOSE ON 5APR10 AND INTERRUPTED ON 05APR2010. MOST RECENT INF ON 05APR10
     Route: 048
     Dates: start: 20100326, end: 20100405

REACTIONS (5)
  - ANAEMIA [None]
  - DEHYDRATION [None]
  - MUCOSAL INFLAMMATION [None]
  - NAUSEA [None]
  - NEUTROPENIA [None]
